FAERS Safety Report 8095972-0 (Version None)
Quarter: 2012Q1

REPORT INFORMATION
  Report Type: 
  Country: None (occurrence: None)
  Receive Date: 20120129
  Receipt Date: 20111212
  Transmission Date: 20120608
  Serious: No
  Sender: FDA-Public Use
  Company Number: US-ABBOTT-11P-163-0883576-00

PATIENT
  Sex: Female
  Weight: 108.96 kg

DRUGS (7)
  1. PREDNISONE TAB [Concomitant]
     Indication: RHEUMATOID ARTHRITIS
  2. METHOTREXATE [Suspect]
     Indication: RHEUMATOID ARTHRITIS
     Dates: start: 20091001, end: 20110201
  3. HUMIRA [Suspect]
     Indication: RHEUMATOID ARTHRITIS
     Route: 058
     Dates: start: 20101001, end: 20110201
  4. METHOTREXATE [Suspect]
     Dates: start: 20110301, end: 20110801
  5. HUMIRA [Suspect]
     Route: 058
     Dates: start: 20111206
  6. METHOTREXATE [Suspect]
     Dates: start: 20111001
  7. XOLAIR [Suspect]
     Indication: ASTHMA
     Route: 058
     Dates: start: 20100201, end: 20110201

REACTIONS (6)
  - PYREXIA [None]
  - RHEUMATOID ARTHRITIS [None]
  - LYMPHADENOPATHY [None]
  - ARTHRALGIA [None]
  - WHITE BLOOD CELL COUNT INCREASED [None]
  - MYALGIA [None]
